FAERS Safety Report 23876867 (Version 4)
Quarter: 2024Q2

REPORT INFORMATION
  Report Type: Report from Study
  Country: JP (occurrence: JP)
  Receive Date: 20240521
  Receipt Date: 20240625
  Transmission Date: 20240716
  Serious: Yes (Hospitalization, Disabling, Other)
  Sender: FDA-Public Use
  Company Number: JP-002147023-NVSJ2024JP005725

PATIENT
  Age: 49 Year
  Sex: Male
  Weight: 85 kg

DRUGS (3)
  1. BEOVU [Suspect]
     Active Substance: BROLUCIZUMAB-DBLL
     Indication: Diabetic retinal oedema
     Dosage: 6 MG,LEFT EYE
     Route: 031
     Dates: start: 20230410
  2. BEOVU [Suspect]
     Active Substance: BROLUCIZUMAB-DBLL
     Dosage: 6 MG,RIGHT EYE
     Route: 031
     Dates: start: 20230424
  3. BEOVU [Suspect]
     Active Substance: BROLUCIZUMAB-DBLL
     Dosage: 6 MG,LEFT EYE
     Route: 031
     Dates: start: 20231113

REACTIONS (6)
  - Vitreous haemorrhage [Recovered/Resolved]
  - Blindness transient [Recovered/Resolved]
  - Renal impairment [Recovered/Resolved with Sequelae]
  - Concomitant disease aggravated [Recovered/Resolved with Sequelae]
  - Intraocular pressure increased [Recovered/Resolved with Sequelae]
  - Blindness unilateral [Unknown]

NARRATIVE: CASE EVENT DATE: 20230508
